FAERS Safety Report 15219124 (Version 1)
Quarter: 2018Q3

REPORT INFORMATION
  Report Type: Report from Study
  Country: None (occurrence: AR)
  Receive Date: 20180731
  Receipt Date: 20180731
  Transmission Date: 20181010
  Serious: Yes (Hospitalization)
  Sender: FDA-Public Use
  Company Number: AR-ABBVIE-18K-007-2434710-00

PATIENT
  Sex: Female

DRUGS (3)
  1. HUMIRA [Suspect]
     Active Substance: ADALIMUMAB
     Indication: ERYTHRODERMIC PSORIASIS
  2. HUMIRA [Suspect]
     Active Substance: ADALIMUMAB
     Indication: PSORIASIS
     Route: 058
     Dates: start: 20180326
  3. HUMIRA [Suspect]
     Active Substance: ADALIMUMAB
     Indication: PUSTULAR PSORIASIS

REACTIONS (7)
  - White blood cell count increased [Unknown]
  - Injury [Unknown]
  - Drug effect incomplete [Unknown]
  - Skin lesion [Unknown]
  - Off label use [Unknown]
  - Psoriasis [Unknown]
  - Bacterial infection [Unknown]

NARRATIVE: CASE EVENT DATE: 2018
